FAERS Safety Report 17325172 (Version 1)
Quarter: 2020Q1

REPORT INFORMATION
  Report Type: Spontaneous
  Country: US (occurrence: US)
  Receive Date: 20200126
  Receipt Date: 20200126
  Transmission Date: 20200409
  Serious: No
  Sender: FDA-Public Use
  Company Number: None

PATIENT
  Age: 27 Year
  Sex: Male
  Weight: 72 kg

DRUGS (6)
  1. FERROUS SULFATE 325MG [Concomitant]
     Active Substance: FERROUS SULFATE
  2. VITAMIN B12 1000UCG [Concomitant]
  3. CONCERTA [Suspect]
     Active Substance: METHYLPHENIDATE HYDROCHLORIDE
     Indication: ATTENTION DEFICIT/HYPERACTIVITY DISORDER
     Dosage: ?          QUANTITY:1 TABLET(S);?
     Route: 048
  4. RITALIN (GENERIC-BRAND) 10MG [Concomitant]
  5. CONCERTA EXTENDED RELEASE 27MG [Concomitant]
  6. ADULT MULTIVITAMIN SUPPLEMENT [Concomitant]

REACTIONS (2)
  - Therapy non-responder [None]
  - Product substitution issue [None]

NARRATIVE: CASE EVENT DATE: 20200126
